FAERS Safety Report 18410271 (Version 4)
Quarter: 2020Q4

REPORT INFORMATION
  Report Type: Spontaneous
  Country: CA (occurrence: CA)
  Receive Date: 20201021
  Receipt Date: 20201106
  Transmission Date: 20210114
  Serious: Yes (Other)
  Sender: FDA-Public Use
  Company Number: CA-PFIZER INC-2018224727

PATIENT
  Age: 63 Year
  Sex: Female

DRUGS (9)
  1. XELJANZ [Suspect]
     Active Substance: TOFACITINIB CITRATE
     Dosage: 5 MG, 2X/DAY (BID)
     Route: 048
     Dates: start: 202010
  2. METHOTREXATE. [Concomitant]
     Active Substance: METHOTREXATE
     Dosage: UNK, WEEKLY
     Route: 048
  3. PROTONIX /00661201/ [Concomitant]
     Active Substance: OMEPRAZOLE
     Dosage: UNK
  4. PREDNISONE. [Concomitant]
     Active Substance: PREDNISONE
     Dosage: 5 MG, DAILY
  5. XELJANZ [Suspect]
     Active Substance: TOFACITINIB CITRATE
     Dosage: 5 MG, 2X/DAY (BID), (RESUME DATE AFTER 26MAY2018)
     Route: 048
     Dates: end: 202010
  6. XELJANZ [Suspect]
     Active Substance: TOFACITINIB CITRATE
     Indication: RHEUMATOID ARTHRITIS
     Dosage: 5 MG, 2X/DAY
     Route: 048
     Dates: start: 20180326, end: 20180526
  7. SULFASALAZINE. [Concomitant]
     Active Substance: SULFASALAZINE
     Dosage: UNK
  8. CALCIUM [Concomitant]
     Active Substance: CALCIUM
     Dosage: UNK
  9. PLAQUENIL /00072602/ [Concomitant]
     Active Substance: HYDROXYCHLOROQUINE DIPHOSPHATE
     Dosage: UNK

REACTIONS (2)
  - Therapeutic product effect incomplete [Unknown]
  - Ovarian cancer [Unknown]
